FAERS Safety Report 19453945 (Version 1)
Quarter: 2021Q2

REPORT INFORMATION
  Report Type: Spontaneous
  Country: US (occurrence: US)
  Receive Date: 20210623
  Receipt Date: 20210623
  Transmission Date: 20210717
  Serious: Yes (Life-Threatening, Hospitalization, Other)
  Sender: FDA-Public Use
  Company Number: US-DRREDDYS-SPO/USA/21/0136680

PATIENT
  Age: 33 Year
  Sex: Female
  Weight: 50 kg

DRUGS (5)
  1. CEFAZOLIN [Suspect]
     Active Substance: CEFAZOLIN
     Indication: PROPHYLAXIS
     Route: 042
  2. METHYLPREDNISOLONE. [Concomitant]
     Active Substance: METHYLPREDNISOLONE
     Indication: IMMUNOSUPPRESSANT DRUG THERAPY
  3. PROPOFOL INJECTABLE EMULSION [Concomitant]
     Active Substance: PROPOFOL
     Indication: INDUCTION OF ANAESTHESIA
  4. CISATRACURIUM. [Concomitant]
     Active Substance: CISATRACURIUM
     Indication: INDUCTION OF ANAESTHESIA
  5. SEVOFLURANE. [Concomitant]
     Active Substance: SEVOFLURANE
     Indication: MAINTENANCE OF ANAESTHESIA

REACTIONS (8)
  - Anaphylactic reaction [Recovered/Resolved]
  - Tryptase increased [Recovered/Resolved]
  - Bradycardia [Recovered/Resolved]
  - Hypotension [Recovered/Resolved]
  - Tachycardia [Recovered/Resolved]
  - Circulatory collapse [Recovered/Resolved]
  - Cardio-respiratory arrest [Recovered/Resolved]
  - Haemodynamic instability [Recovered/Resolved]
